FAERS Safety Report 9367239 (Version 1)
Quarter: 2013Q2

REPORT INFORMATION
  Report Type: Spontaneous
  Country: US (occurrence: US)
  Receive Date: 20130625
  Receipt Date: 20130625
  Transmission Date: 20140414
  Serious: No
  Sender: FDA-Public Use
  Company Number: US-ASTELLAS-2012US005335

PATIENT
  Sex: Female

DRUGS (5)
  1. VESICARE [Suspect]
     Indication: ENURESIS
     Dosage: 5 MG, UID/QD
     Route: 048
     Dates: start: 20120419
  2. VESICARE [Suspect]
     Indication: URINARY RETENTION
     Dosage: 5 MG, UID/QD
     Route: 048
     Dates: start: 20120611
  3. VESICARE [Suspect]
     Indication: HYPERTONIC BLADDER
  4. VESICARE [Suspect]
     Indication: INCONTINENCE
  5. TRAMADOL [Suspect]
     Indication: PRODUCT USED FOR UNKNOWN INDICATION
     Dosage: UNK
     Route: 065

REACTIONS (4)
  - Off label use [Unknown]
  - Drug ineffective [Unknown]
  - Dry mouth [Unknown]
  - Constipation [Unknown]
